FAERS Safety Report 5768471-6 (Version None)
Quarter: 2008Q2

REPORT INFORMATION
  Report Type: 
  Country: None (occurrence: None)
  Receive Date: 20080610
  Receipt Date: 20080526
  Transmission Date: 20081010
  Serious: Yes (Hospitalization)
  Sender: FDA-Public Use
  Company Number: DSA_31923_2008

PATIENT
  Sex: Female

DRUGS (1)
  1. TAVOR /00273201/ (TAVOR - LORAZEPAM) 0.5 MG (NOT SPECIFIED) [Suspect]
     Dosage: (10 MG 1X ORAL)
     Route: 048
     Dates: start: 20080525, end: 20080525

REACTIONS (3)
  - DRUG EXPOSURE DURING PREGNANCY [None]
  - FATIGUE [None]
  - OVERDOSE [None]
